FAERS Safety Report 18440302 (Version 1)
Quarter: 2020Q4

REPORT INFORMATION
  Report Type: Spontaneous
  Country: US (occurrence: US)
  Receive Date: 20201029
  Receipt Date: 20201029
  Transmission Date: 20210114
  Serious: Yes (Other)
  Sender: FDA-Public Use
  Company Number: US-PFIZER INC-2020419153

PATIENT
  Age: 73 Year
  Sex: Female

DRUGS (1)
  1. ADVIL [Suspect]
     Active Substance: IBUPROFEN
     Dosage: 200 MG

REACTIONS (5)
  - Oropharyngeal pain [Unknown]
  - Speech disorder [Unknown]
  - Product shape issue [Unknown]
  - Odynophagia [Unknown]
  - Foreign body in throat [Unknown]
